FAERS Safety Report 10433126 (Version 2)
Quarter: 2014Q3

REPORT INFORMATION
  Report Type: Spontaneous
  Country: US (occurrence: US)
  Receive Date: 20140905
  Receipt Date: 20140905
  Transmission Date: 20150326
  Serious: No
  Sender: FDA-Public Use
  Company Number: US-BAYER-2014-128377

PATIENT
  Age: 50 Year
  Sex: Male

DRUGS (1)
  1. FINACEA [Suspect]
     Active Substance: AZELAIC ACID
     Indication: RASH
     Dosage: UNK
     Dates: start: 20140301

REACTIONS (1)
  - Drug ineffective for unapproved indication [None]
